FAERS Safety Report 4456029-0 (Version None)
Quarter: 2004Q3

REPORT INFORMATION
  Report Type: 
  Country: None (occurrence: None)
  Receive Date: 20040922
  Receipt Date: 20040913
  Transmission Date: 20050211
  Serious: Yes (Other)
  Sender: FDA-Public Use
  Company Number: PHBS2004BR12446

PATIENT
  Age: 75 Year
  Sex: Male
  Weight: 72 kg

DRUGS (4)
  1. FORADIL [Suspect]
     Indication: BRONCHITIS
     Dosage: QD
     Dates: start: 20040910
  2. INSULIN [Concomitant]
     Indication: DIABETES MELLITUS
     Dosage: BID
     Route: 042
  3. MONOCORDIL [Concomitant]
     Indication: VEIN DISORDER
     Dosage: 40 MG, BID
     Route: 048
  4. SIMVASTATIN [Concomitant]
     Indication: BLOOD CHOLESTEROL DECREASED
     Dosage: 10 MG, QD
     Route: 048

REACTIONS (2)
  - BLOOD GLUCOSE INCREASED [None]
  - DIARRHOEA [None]
